FAERS Safety Report 4353682-7 (Version None)
Quarter: 2004Q2

REPORT INFORMATION
  Report Type: 
  Country: None (occurrence: None)
  Receive Date: 20040430
  Receipt Date: 20040415
  Transmission Date: 20050107
  Serious: Yes (Death, Life-Threatening)
  Sender: FDA-Public Use
  Company Number: FR-JNJFOC-20040303407

PATIENT
  Age: 89 Year
  Sex: Female

DRUGS (7)
  1. DURAGESIC [Suspect]
     Indication: POST PROCEDURAL PAIN
     Dosage: 25 UG/HR, 1 IN 3 DAY, TRANSDERMAL
     Route: 062
     Dates: start: 20031006, end: 20031007
  2. MORPHINE [Suspect]
     Indication: PAIN
     Dosage: 20 MG,  1 IN 1 DAY, ORAL; SEE IMAGE
     Route: 048
     Dates: start: 20031002, end: 20031003
  3. MORPHINE [Suspect]
     Indication: PAIN
     Dosage: 20 MG,  1 IN 1 DAY, ORAL; SEE IMAGE
     Route: 048
     Dates: start: 20031004, end: 20031005
  4. MORPHINE [Suspect]
     Indication: PAIN
     Dosage: 20 MG,  1 IN 1 DAY, ORAL; SEE IMAGE
     Route: 048
     Dates: start: 20031006, end: 20031006
  5. MORPHINE SULFATE [Suspect]
     Indication: PAIN
     Dosage: 35 MG, 1 IN 1 DAY, ORAL; SEE IMAGE
     Route: 048
     Dates: start: 20031002, end: 20031003
  6. MORPHINE SULFATE [Suspect]
     Indication: PAIN
     Dosage: 35 MG, 1 IN 1 DAY, ORAL; SEE IMAGE
     Route: 048
     Dates: start: 20031004, end: 20031005
  7. MORPHINE SULFATE [Suspect]
     Indication: PAIN
     Dosage: 35 MG, 1 IN 1 DAY, ORAL; SEE IMAGE
     Route: 048
     Dates: start: 20031006, end: 20031006

REACTIONS (8)
  - ARRHYTHMIA [None]
  - CEREBROVASCULAR ACCIDENT [None]
  - CONSTIPATION [None]
  - DRUG INTERACTION [None]
  - OVERDOSE [None]
  - PAIN [None]
  - RESPIRATORY ARREST [None]
  - SUDDEN DEATH [None]
